FAERS Safety Report 8913688 (Version 4)
Quarter: 2013Q3

REPORT INFORMATION
  Report Type: Spontaneous
  Country: US (occurrence: US)
  Receive Date: 20121116
  Receipt Date: 20130923
  Transmission Date: 20140515
  Serious: Yes (Death, Hospitalization)
  Sender: FDA-Public Use
  Company Number: US-BIOGENIDEC-2012BI052982

PATIENT
  Age: 59 Year
  Sex: Male

DRUGS (21)
  1. TYSABRI [Suspect]
     Indication: MULTIPLE SCLEROSIS
     Route: 042
     Dates: start: 20080125, end: 20120913
  2. AVONEX [Concomitant]
     Indication: MULTIPLE SCLEROSIS
  3. AMANTADINE [Concomitant]
  4. ATENOLOL [Concomitant]
  5. GABAPENTIN [Concomitant]
  6. PROTONIX [Concomitant]
  7. PAROXETINE [Concomitant]
  8. UROXATRAL [Concomitant]
  9. COLACE [Concomitant]
  10. TESTOSTERONE [Concomitant]
  11. IRON [Concomitant]
  12. FOLIC ACID [Concomitant]
  13. VITAMIN B6 [Concomitant]
  14. VITAMIN B12 [Concomitant]
  15. MULTIVITAMIN [Concomitant]
  16. VITAMIN E [Concomitant]
  17. VITAMIN D3 [Concomitant]
  18. VITAMIN C [Concomitant]
  19. MAGNESIUM [Concomitant]
  20. FISH OIL [Concomitant]
  21. NITROFURANTOIN [Concomitant]

REACTIONS (3)
  - Death [Fatal]
  - Progressive multifocal leukoencephalopathy [Not Recovered/Not Resolved]
  - Multiple sclerosis relapse [Unknown]
